FAERS Safety Report 20105005 (Version 2)
Quarter: 2021Q4

REPORT INFORMATION
  Report Type: Report from Study
  Country: FI (occurrence: FI)
  Receive Date: 20211124
  Receipt Date: 20211126
  Transmission Date: 20220303
  Serious: Yes (Other)
  Sender: FDA-Public Use
  Company Number: FI-ABBVIE-21K-055-4171363-00

PATIENT
  Sex: Female

DRUGS (13)
  1. CARBIDOPA\LEVODOPA [Suspect]
     Active Substance: CARBIDOPA\LEVODOPA
     Indication: Parkinson^s disease
     Dosage: MD 13 ML; CD IN THE DAYTIME 3.2 ML/H AND AT NIGHT 2.9 ML/H. 24 H TREATMENT. 3 YRS BEFORE
     Route: 050
  2. CARBIDOPA\LEVODOPA [Suspect]
     Active Substance: CARBIDOPA\LEVODOPA
  3. INNOHEP [Concomitant]
     Active Substance: TINZAPARIN SODIUM
     Indication: Product used for unknown indication
  4. FUROSEMIDE [Concomitant]
     Active Substance: FUROSEMIDE
     Indication: Product used for unknown indication
     Dosage: HALF A TABLET ONCE A DAY
     Route: 048
  5. MIRTAZAPINE [Concomitant]
     Active Substance: MIRTAZAPINE
     Indication: Product used for unknown indication
     Dosage: HALF A TABLET ONCE A DAY
     Route: 048
  6. TRIOBE [Concomitant]
     Indication: Product used for unknown indication
     Route: 048
  7. OBSIDAN FE++ COMP [Concomitant]
     Indication: Product used for unknown indication
     Route: 048
  8. FELODIPINE [Concomitant]
     Active Substance: FELODIPINE
     Indication: Product used for unknown indication
     Route: 048
  9. TARGINIQ ER [Concomitant]
     Active Substance: NALOXONE HYDROCHLORIDE\OXYCODONE HYDROCHLORIDE
     Indication: Product used for unknown indication
     Dosage: 5 MG/2.5 MG TWICE A DAY
  10. PANADOL FORTE [Concomitant]
     Indication: Product used for unknown indication
     Route: 048
  11. BRINTELLIX [Concomitant]
     Active Substance: VORTIOXETINE HYDROBROMIDE
     Indication: Product used for unknown indication
     Route: 048
  12. ATRODUAL [Concomitant]
     Indication: Product used for unknown indication
     Dosage: 0.5/2.5 MG; 4 DOSES PER DAY
  13. COSOPT [Concomitant]
     Active Substance: DORZOLAMIDE HYDROCHLORIDE\TIMOLOL MALEATE
     Indication: Product used for unknown indication
     Dosage: 20 MG/ML+5 MG/ML, 1 DROP TWICE A DAY INTO THE RIGHT EYE
     Route: 047

REACTIONS (5)
  - Endometrial cancer stage III [Recovering/Resolving]
  - Breast neoplasm [Not Recovered/Not Resolved]
  - Metastases to lung [Not Recovered/Not Resolved]
  - Pain [Unknown]
  - Nausea [Unknown]
